FAERS Safety Report 11916477 (Version 2)
Quarter: 2016Q1

REPORT INFORMATION
  Report Type: Spontaneous
  Country: US (occurrence: US)
  Receive Date: 20160114
  Receipt Date: 20160222
  Transmission Date: 20160526
  Serious: Yes (Other)
  Sender: FDA-Public Use
  Company Number: US-009507513-1601USA001499

PATIENT
  Age: 4 Year
  Sex: Male

DRUGS (2)
  1. TEMODAR [Suspect]
     Active Substance: TEMOZOLOMIDE
     Indication: CHEMOTHERAPY
  2. TEMODAR [Suspect]
     Active Substance: TEMOZOLOMIDE
     Indication: ASTROCYTOMA, LOW GRADE
     Dosage: UNK
     Route: 048

REACTIONS (1)
  - Cerebral infarction [Unknown]
